FAERS Safety Report 20900428 (Version 1)
Quarter: 2022Q2

REPORT INFORMATION
  Report Type: Spontaneous
  Country: DE (occurrence: DE)
  Receive Date: 20220601
  Receipt Date: 20220601
  Transmission Date: 20220721
  Serious: Yes (Other)
  Sender: FDA-Public Use
  Company Number: None

PATIENT
  Age: 75 Year
  Sex: Male
  Weight: 71 kg

DRUGS (2)
  1. AZELASTINE [Suspect]
     Active Substance: AZELASTINE
     Indication: Lacrimation increased
     Dosage: UNK, QD,IN THE MORNING AND IN THE EVENING 1 DROP PER EYE ALLERGODIL DROPS FROM 08-MAY
     Route: 047
     Dates: start: 20220508, end: 20220508
  2. AZELASTINE [Suspect]
     Active Substance: AZELASTINE
     Indication: Eye allergy
     Dosage: UNK, BID ON 09-MAY IN THE MORNING AND IN THE EVENING.
     Route: 047
     Dates: start: 20220509, end: 20220509

REACTIONS (2)
  - Arrhythmia [Recovered/Resolved]
  - Atrial fibrillation [Recovered/Resolved]

NARRATIVE: CASE EVENT DATE: 20220509
